FAERS Safety Report 6128445-2 (Version None)
Quarter: 2009Q1

REPORT INFORMATION
  Report Type: 
  Country: None (occurrence: None)
  Receive Date: 20090323
  Receipt Date: 20090311
  Transmission Date: 20090719
  Serious: Yes (Hospitalization)
  Sender: FDA-Public Use
  Company Number: US-BAYER-200910706BCC

PATIENT
  Age: 43 Year
  Sex: Female

DRUGS (13)
  1. ALEVE [Suspect]
     Indication: PAIN
     Dates: start: 20070101
  2. HUMIRA [Suspect]
     Indication: RHEUMATOID ARTHRITIS
     Dosage: UNIT DOSE: 40 MG
     Dates: start: 20060701, end: 20071001
  3. HUMIRA [Suspect]
     Dosage: UNIT DOSE: 40 MG
     Dates: start: 20071001
  4. CLOPIDOGREL [Concomitant]
     Dosage: TOTAL DAILY DOSE: 40  MG  UNIT DOSE: 40 MG
  5. CARVEDILOL [Concomitant]
     Indication: BLOOD PRESSURE MANAGEMENT
     Dosage: TOTAL DAILY DOSE: 250 MG  UNIT DOSE: 250 MG
     Route: 048
  6. LEVOXYL [Concomitant]
     Dosage: TOTAL DAILY DOSE: 25 ?G  UNIT DOSE: 25 ?G
  7. SIMVASTATIN [Concomitant]
     Dosage: TOTAL DAILY DOSE: 40 MG  UNIT DOSE: 40 MG
  8. TRAMADOL HCL [Concomitant]
     Dosage: PRN Q6-8 HRS
     Route: 048
  9. GABAPENTIN [Concomitant]
     Indication: PAIN
     Dosage: TOTAL DAILY DOSE: 600 MG  UNIT DOSE: 300 MG
     Route: 048
  10. PREDNISONE [Concomitant]
     Indication: CONDITION AGGRAVATED
  11. INSULIN NPH [Concomitant]
     Dosage: TOTAL DAILY DOSE: 35 U
     Route: 058
  12. HUMIRA [Concomitant]
     Dosage: 40MG/0/8ML PEN
     Dates: start: 20071001, end: 20081001
  13. REGULAR INSULIN [Concomitant]
     Dosage: INSULIN R GIVEN ON A SLIGING SCALE
     Route: 058

REACTIONS (6)
  - ACUTE MYOCARDIAL INFARCTION [None]
  - CARDIOGENIC SHOCK [None]
  - HAEMOLYTIC ANAEMIA [None]
  - HYPOTENSION [None]
  - PNEUMONIA [None]
  - RHEUMATOID ARTHRITIS [None]
